FAERS Safety Report 6251598-2 (Version None)
Quarter: 2009Q2

REPORT INFORMATION
  Report Type: 
  Country: None (occurrence: None)
  Receive Date: 20090626
  Receipt Date: 20090626
  Transmission Date: 20091009
  Serious: No
  Sender: FDA-Public Use
  Company Number: None

PATIENT
  Age: 27 Year
  Sex: Male

DRUGS (1)
  1. ZICAM COLD REMEDY NASAL GEL 15ML, NDC 62750-003-10 MATRIXX [Suspect]
     Indication: NASAL CONGESTION
     Dosage: 1 SPRAY 1 SPRAY PRN @HS NASAL
     Route: 045
     Dates: start: 20060101, end: 20080801

REACTIONS (5)
  - EPISTAXIS [None]
  - HYPOSMIA [None]
  - NASAL CONGESTION [None]
  - RHINALGIA [None]
  - RHINORRHOEA [None]
